FAERS Safety Report 18634521 (Version 1)
Quarter: 2020Q4

REPORT INFORMATION
  Report Type: Spontaneous
  Country: US (occurrence: US)
  Receive Date: 20201217
  Receipt Date: 20201217
  Transmission Date: 20210114
  Serious: Yes (Hospitalization)
  Sender: FDA-Public Use
  Company Number: None

PATIENT
  Sex: Female

DRUGS (23)
  1. DULERA [Concomitant]
     Active Substance: FORMOTEROL FUMARATE DIHYDRATE\MOMETASONE FUROATE
  2. FOLIC ACID. [Concomitant]
     Active Substance: FOLIC ACID
  3. NIFEDIPINE. [Concomitant]
     Active Substance: NIFEDIPINE
  4. CLARITIN [Concomitant]
     Active Substance: LORATADINE
  5. METHOTREXATE. [Concomitant]
     Active Substance: METHOTREXATE
  6. ACIPHEX [Concomitant]
     Active Substance: RABEPRAZOLE SODIUM
  7. CELEBREX [Concomitant]
     Active Substance: CELECOXIB
  8. METOPROL TAR [Concomitant]
  9. SYNTHROID [Concomitant]
     Active Substance: LEVOTHYROXINE SODIUM
  10. ZOLOFT [Concomitant]
     Active Substance: SERTRALINE HYDROCHLORIDE
  11. VERZENIO [Suspect]
     Active Substance: ABEMACICLIB
     Indication: BREAST CANCER FEMALE
     Route: 048
     Dates: start: 20190905
  12. ASPIRIN EC [Concomitant]
     Active Substance: ASPIRIN
  13. CALCIUM/D [Concomitant]
  14. TYLENOL/COD [Concomitant]
  15. FASLODEX [Concomitant]
     Active Substance: FULVESTRANT
  16. FIBERCON [Concomitant]
     Active Substance: CALCIUM POLYCARBOPHIL
  17. IRON [Concomitant]
     Active Substance: IRON
  18. POT CHLORIDE ER [Concomitant]
  19. XANAX [Concomitant]
     Active Substance: ALPRAZOLAM
  20. BOTOX [Concomitant]
     Active Substance: ONABOTULINUMTOXINA
  21. DIGEST II [Concomitant]
  22. VITAMIN D3 [Concomitant]
     Active Substance: CHOLECALCIFEROL
  23. MULTIVITAMIN ADLT 50+ [Concomitant]

REACTIONS (2)
  - Abdominal pain upper [None]
  - Diarrhoea [None]
